FAERS Safety Report 8099012-9 (Version None)
Quarter: 2012Q1

REPORT INFORMATION
  Report Type: 
  Country: None (occurrence: None)
  Receive Date: 20120131
  Receipt Date: 20120119
  Transmission Date: 20120608
  Serious: Yes (Other)
  Sender: FDA-Public Use
  Company Number: CHPA2012US001738

PATIENT
  Sex: Female

DRUGS (1)
  1. EXCEDRIN PM TABLETS [Suspect]
     Indication: DYSMENORRHOEA
     Dosage: UNK DF, UNK
     Route: 048
     Dates: start: 20120116, end: 20120118

REACTIONS (10)
  - LOSS OF CONSCIOUSNESS [None]
  - INAPPROPRIATE SCHEDULE OF DRUG ADMINISTRATION [None]
  - BLOOD PRESSURE INCREASED [None]
  - HEADACHE [None]
  - SENSORY DISTURBANCE [None]
  - VISUAL IMPAIRMENT [None]
  - THERAPEUTIC RESPONSE UNEXPECTED [None]
  - SOMNOLENCE [None]
  - OFF LABEL USE [None]
  - UNDERDOSE [None]
